FAERS Safety Report 6304317-5 (Version None)
Quarter: 2009Q3

REPORT INFORMATION
  Report Type: 
  Country: None (occurrence: None)
  Receive Date: 20090811
  Receipt Date: 20090801
  Transmission Date: 20100115
  Serious: Yes (Hospitalization)
  Sender: FDA-Public Use
  Company Number: CA-JNJFOC-20090800369

PATIENT
  Sex: Female
  Weight: 61.69 kg

DRUGS (32)
  1. REMICADE [Suspect]
     Route: 042
  2. REMICADE [Suspect]
     Route: 042
  3. REMICADE [Suspect]
     Route: 042
  4. REMICADE [Suspect]
     Route: 042
  5. REMICADE [Suspect]
     Route: 042
  6. REMICADE [Suspect]
     Route: 042
  7. REMICADE [Suspect]
     Route: 042
  8. REMICADE [Suspect]
     Route: 042
  9. REMICADE [Suspect]
     Route: 042
  10. REMICADE [Suspect]
     Route: 042
  11. REMICADE [Suspect]
     Route: 042
  12. REMICADE [Suspect]
     Route: 042
  13. REMICADE [Suspect]
     Route: 042
  14. REMICADE [Suspect]
     Route: 042
  15. REMICADE [Suspect]
     Route: 042
  16. REMICADE [Suspect]
     Route: 042
  17. REMICADE [Suspect]
     Route: 042
  18. REMICADE [Suspect]
     Route: 042
  19. REMICADE [Suspect]
     Indication: RHEUMATOID ARTHRITIS
     Route: 042
  20. DIPHENHYDRAMINE HCL [Concomitant]
     Indication: PREMEDICATION
     Route: 042
  21. COUMADIN [Concomitant]
  22. PLAQUENIL [Concomitant]
  23. MOBICOX [Concomitant]
  24. DIOVAN [Concomitant]
  25. HYDRA-ZIDE [Concomitant]
  26. LEUCOVORIN CALCIUM [Concomitant]
  27. METHOTREXATE [Concomitant]
     Route: 048
  28. PROLOL [Concomitant]
  29. FERROUS SULFATE TAB [Concomitant]
  30. PREDNISONE [Concomitant]
  31. PREDNISONE [Concomitant]
     Indication: SKIN DISORDER
  32. MONOCOR [Concomitant]

REACTIONS (8)
  - CARDIAC DISORDER [None]
  - CELLULITIS [None]
  - COMA [None]
  - KIDNEY INFECTION [None]
  - LUNG DISORDER [None]
  - MENINGITIS [None]
  - SEPTIC SHOCK [None]
  - SKIN DISORDER [None]
